FAERS Safety Report 8072834-6 (Version None)
Quarter: 2012Q1

REPORT INFORMATION
  Report Type: 
  Country: None (occurrence: None)
  Receive Date: 20120126
  Receipt Date: 20120111
  Transmission Date: 20120608
  Serious: Yes (Other)
  Sender: FDA-Public Use
  Company Number: US-BAUSCH-2011BL007372

PATIENT
  Age: 69 Year
  Sex: Female

DRUGS (9)
  1. SIMVASTATIN [Concomitant]
     Route: 048
  2. BRIMONIDINE TARTRATE [Suspect]
     Indication: GLAUCOMA
     Route: 047
     Dates: start: 20111014
  3. PROZAC [Concomitant]
  4. ASCORBIC ACID [Concomitant]
  5. CITRACAL [Concomitant]
  6. COENZYME Q10 [Concomitant]
  7. FISH OIL [Concomitant]
  8. VITAMIN D [Concomitant]
  9. BRIMONIDINE TARTRATE [Suspect]
     Route: 047
     Dates: start: 20110301, end: 20111013

REACTIONS (1)
  - INTRAOCULAR PRESSURE INCREASED [None]
